FAERS Safety Report 15609843 (Version 2)
Quarter: 2018Q4

REPORT INFORMATION
  Report Type: Spontaneous
  Country: US (occurrence: US)
  Receive Date: 20181113
  Receipt Date: 20181225
  Transmission Date: 20190205
  Serious: Yes (Hospitalization)
  Sender: FDA-Public Use
  Company Number: US-AMGEN-USASP2018157417

PATIENT
  Age: 67 Year
  Sex: Male

DRUGS (1)
  1. REPATHA [Suspect]
     Active Substance: EVOLOCUMAB
     Indication: HYPERLIPIDAEMIA
     Dosage: 140 MG, Q2WK
     Route: 058
     Dates: start: 20181102

REACTIONS (14)
  - Nasopharyngitis [Unknown]
  - Insomnia [Unknown]
  - Therapeutic response unexpected [Unknown]
  - Dizziness [Unknown]
  - Feeling cold [Unknown]
  - Myalgia [Unknown]
  - Tremor [Unknown]
  - Oral herpes [Unknown]
  - Influenza like illness [Not Recovered/Not Resolved]
  - Pain [Not Recovered/Not Resolved]
  - Sinus disorder [Unknown]
  - Abdominal pain [Not Recovered/Not Resolved]
  - Presyncope [Unknown]
  - Fluid retention [Unknown]

NARRATIVE: CASE EVENT DATE: 2018
